FAERS Safety Report 7046497-2 (Version None)
Quarter: 2010Q4

REPORT INFORMATION
  Report Type: 
  Country: None (occurrence: None)
  Receive Date: 20101014
  Receipt Date: 20101002
  Transmission Date: 20110411
  Serious: Yes (Other)
  Sender: FDA-Public Use
  Company Number: PHHY2010MX65786

PATIENT

DRUGS (3)
  1. ACLASTA [Suspect]
     Indication: OSTEOPOROSIS
     Dosage: 5MG/100ML/YEAR
     Route: 042
     Dates: start: 20100901
  2. DICLOFENAC SODIUM [Concomitant]
  3. DOLO-NEUROBION [Concomitant]

REACTIONS (4)
  - ARTHRALGIA [None]
  - CHONDROPATHY [None]
  - MUSCULOSKELETAL PAIN [None]
  - PAIN IN EXTREMITY [None]
